FAERS Safety Report 18555646 (Version 1)
Quarter: 2020Q4

REPORT INFORMATION
  Report Type: Spontaneous
  Country: CN (occurrence: CN)
  Receive Date: 20201127
  Receipt Date: 20201127
  Transmission Date: 20210114
  Serious: Yes (Hospitalization)
  Sender: FDA-Public Use
  Company Number: CN-ASTRAZENECA-2020SF56576

PATIENT
  Age: 24472 Day
  Sex: Female
  Weight: 48 kg

DRUGS (2)
  1. DAPAGLIFLOZIN. [Suspect]
     Active Substance: DAPAGLIFLOZIN
     Indication: BLOOD GLUCOSE ABNORMAL
     Route: 048
     Dates: start: 20200912, end: 20201111
  2. DAPAGLIFLOZIN. [Suspect]
     Active Substance: DAPAGLIFLOZIN
     Indication: HYPOGLYCAEMIA
     Route: 048
     Dates: start: 20200912, end: 20201111

REACTIONS (2)
  - Ketosis [Recovering/Resolving]
  - Urinary tract infection [Recovering/Resolving]

NARRATIVE: CASE EVENT DATE: 20201111
